FAERS Safety Report 20615616 (Version 1)
Quarter: 2022Q1

REPORT INFORMATION
  Report Type: Spontaneous
  Country: IN (occurrence: IN)
  Receive Date: 20220321
  Receipt Date: 20220321
  Transmission Date: 20220424
  Serious: No
  Sender: FDA-Public Use
  Company Number: IN-LUPIN LIMITED-2022-03516

PATIENT
  Age: 46 Year
  Sex: Male
  Weight: 116 kg

DRUGS (3)
  1. AMLODIPINE\TELMISARTAN [Suspect]
     Active Substance: AMLODIPINE\TELMISARTAN
     Indication: Blood pressure measurement
     Dosage: UNK, QD
     Route: 048
     Dates: start: 202110
  2. AMLODIPINE\TELMISARTAN [Suspect]
     Active Substance: AMLODIPINE\TELMISARTAN
     Dosage: UNK, QD
     Route: 048
  3. MONDESLOR [Concomitant]
     Indication: Skin disorder
     Dosage: UNK, SOS
     Route: 065

REACTIONS (3)
  - Ear pain [Not Recovered/Not Resolved]
  - Product dose omission issue [Unknown]
  - Blood pressure fluctuation [Not Recovered/Not Resolved]

NARRATIVE: CASE EVENT DATE: 20220201
